FAERS Safety Report 7092614-8 (Version None)
Quarter: 2010Q4

REPORT INFORMATION
  Report Type: 
  Country: None (occurrence: None)
  Receive Date: 20101110
  Receipt Date: 20101102
  Transmission Date: 20110411
  Serious: Yes (Other)
  Sender: FDA-Public Use
  Company Number: US-US-EMD SERONO, INC.-7025789

PATIENT
  Sex: Female
  Weight: 113 kg

DRUGS (10)
  1. REBIF [Suspect]
     Indication: MULTIPLE SCLEROSIS
     Route: 057
     Dates: start: 20080409
  2. DIOVAN [Concomitant]
     Dates: start: 20050101
  3. VYTORIN [Concomitant]
     Indication: BLOOD CHOLESTEROL
  4. TEGRETOL [Concomitant]
     Indication: TRIGEMINAL NEURALGIA
  5. PLAVIX [Concomitant]
     Indication: CORONARY ARTERY DISEASE
  6. COREG [Concomitant]
     Indication: CORONARY ARTERY DISEASE
  7. CRESTOR [Concomitant]
     Indication: BLOOD CHOLESTEROL INCREASED
  8. ZETIA [Concomitant]
     Indication: BLOOD CHOLESTEROL INCREASED
  9. ACETYLSALICYLIC ACID [Concomitant]
     Indication: CORONARY ARTERY DISEASE
  10. BACLOFEN [Concomitant]

REACTIONS (8)
  - HAEMORRHAGE [None]
  - INJECTION SITE ERYTHEMA [None]
  - INJECTION SITE HAEMATOMA [None]
  - INJECTION SITE PAIN [None]
  - PAIN [None]
  - UTERINE POLYP [None]
  - VULVA CYST [None]
  - VULVAL CANCER [None]
